FAERS Safety Report 9062465 (Version 2)
Quarter: 2013Q1

REPORT INFORMATION
  Report Type: Spontaneous
  Country: US (occurrence: US)
  Receive Date: 20130213
  Receipt Date: 20130315
  Transmission Date: 20140127
  Serious: Yes (Hospitalization)
  Sender: FDA-Public Use
  Company Number: US-B.I. PHARMACEUTICALS,INC./RIDGEFIELD-2013-BI-03839BP

PATIENT
  Age: 74 None
  Sex: Male
  Weight: 103.4 kg

DRUGS (10)
  1. PRADAXA [Suspect]
     Indication: ATRIAL FIBRILLATION
     Dosage: 300 MG
     Dates: start: 20111222, end: 20121006
  2. ALLOPURINOL [Concomitant]
     Dosage: 300 MG
     Route: 048
  3. ALPRAZOLAM [Concomitant]
     Dosage: 0.25 MG
     Route: 048
  4. CARVEDILOL [Concomitant]
     Dosage: 25 MG
     Route: 048
  5. COREG [Concomitant]
     Dosage: 12.5 MG
     Route: 048
  6. FUROSEMIDE [Concomitant]
     Dosage: 80 MG
     Route: 048
  7. GLIPIZIDE XL [Concomitant]
     Dosage: 10 MG
     Route: 048
  8. HYDROXYZINE HCL [Concomitant]
     Dosage: 25 MG
     Route: 048
  9. SIMVASTATIN [Concomitant]
     Dosage: 20 MG
     Route: 048
  10. SPIRONOLACTONE [Concomitant]
     Dosage: 25 MG
     Route: 048

REACTIONS (2)
  - Gastrointestinal haemorrhage [Recovered/Resolved]
  - Intestinal haematoma [Unknown]
